FAERS Safety Report 12465187 (Version 2)
Quarter: 2016Q3

REPORT INFORMATION
  Report Type: Spontaneous
  Country: JP (occurrence: JP)
  Receive Date: 20160614
  Receipt Date: 20160811
  Transmission Date: 20161109
  Serious: Yes (Death, Hospitalization)
  Sender: FDA-Public Use
  Company Number: JP-TAKEDA-2016TUS009889

PATIENT
  Age: 87 Year
  Sex: Male

DRUGS (7)
  1. FEBURIC [Suspect]
     Active Substance: FEBUXOSTAT
     Indication: HYPERURICAEMIA
     Dosage: 20 MG, QD
     Route: 048
     Dates: start: 20141107
  2. ROHYPNOL [Concomitant]
     Active Substance: FLUNITRAZEPAM
     Indication: NEUROSIS
     Dosage: 2 MG, QD
     Route: 048
     Dates: start: 20120116
  3. OXATOMIDE [Concomitant]
     Active Substance: OXATOMIDE
     Indication: ASTHMA
     Dosage: 30 MG, BID
     Route: 048
     Dates: start: 20090915
  4. ETHYL LOFLAZEPATE [Concomitant]
     Active Substance: ETHYL LOFLAZEPATE
     Indication: NEUROSIS
     Dosage: 2 MG, QD
     Route: 048
     Dates: start: 20160526
  5. URIEF [Concomitant]
     Active Substance: SILODOSIN
     Indication: BENIGN PROSTATIC HYPERPLASIA
     Dosage: 4 MG, QD
     Route: 048
     Dates: start: 20160419
  6. DONEPEZIL HYDROCHLORIDE. [Concomitant]
     Active Substance: DONEPEZIL HYDROCHLORIDE
     Indication: DEMENTIA
     Dosage: 5 MG, QD
     Route: 048
     Dates: start: 20160526
  7. ZOLPIDEM TARTRATE. [Concomitant]
     Active Substance: ZOLPIDEM TARTRATE
     Indication: NEUROSIS
     Dosage: 10 MG, QD
     Route: 048
     Dates: start: 20160324

REACTIONS (2)
  - Cerebral arteriosclerosis [Not Recovered/Not Resolved]
  - Pneumonia [Fatal]

NARRATIVE: CASE EVENT DATE: 20160530
